FAERS Safety Report 11783082 (Version 1)
Quarter: 2015Q4

REPORT INFORMATION
  Report Type: Spontaneous
  Country: DE (occurrence: DE)
  Receive Date: 20151127
  Receipt Date: 20151127
  Transmission Date: 20160305
  Serious: Yes (Other)
  Sender: FDA-Public Use
  Company Number: GXKR2015DE005202

PATIENT
  Age: 25 Year
  Sex: Female
  Weight: 90 kg

DRUGS (8)
  1. CLOZAPINE. [Suspect]
     Active Substance: CLOZAPINE
     Indication: SCHIZOPHRENIA, PARANOID TYPE
     Dosage: 350 MG, QD
     Route: 048
  2. NUVARING [Concomitant]
     Active Substance: ETHINYL ESTRADIOL\ETONOGESTREL
     Indication: CONTRACEPTION
     Dosage: UNK UKN, UNK
     Route: 067
     Dates: start: 20140609, end: 20140723
  3. FOLGAMMA [Concomitant]
     Indication: PROPHYLAXIS OF NEURAL TUBE DEFECT
     Dosage: 1.5 MG, QD
     Route: 048
     Dates: start: 20140609, end: 20140724
  4. SEROQUEL [Concomitant]
     Active Substance: QUETIAPINE FUMARATE
     Indication: SCHIZOPHRENIA, PARANOID TYPE
     Dosage: 1200 MG, QD
     Route: 048
     Dates: start: 20140609, end: 20140719
  5. CYTOTEC [Concomitant]
     Active Substance: MISOPROSTOL
     Indication: LABOUR INDUCTION
  6. OMEGA 3 WOMEN [Concomitant]
     Indication: SCHIZOPHRENIA, PARANOID TYPE
     Dosage: 1000 MG, QD
     Route: 048
     Dates: start: 20140609, end: 20140723
  7. DIPIPERON [Concomitant]
     Active Substance: PIPAMPERONE
     Indication: SCHIZOPHRENIA, PARANOID TYPE
     Dosage: 40 MG, QD
     Route: 048
     Dates: start: 20140609, end: 20150321
  8. ABILIFY [Concomitant]
     Active Substance: ARIPIPRAZOLE
     Indication: SCHIZOPHRENIA, PARANOID TYPE
     Dosage: 15 MG, QD
     Route: 048

REACTIONS (3)
  - Vomiting [Unknown]
  - Maternal exposure during pregnancy [Unknown]
  - Parasitic gastroenteritis [Unknown]
